FAERS Safety Report 5839514-6 (Version None)
Quarter: 2008Q3

REPORT INFORMATION
  Report Type: 
  Country: None (occurrence: None)
  Receive Date: 20080807
  Receipt Date: 20080730
  Transmission Date: 20090109
  Serious: Yes (Hospitalization)
  Sender: FDA-Public Use
  Company Number: 056-21880-08071767

PATIENT
  Age: 69 Year
  Sex: Male

DRUGS (14)
  1. REVLIMID [Suspect]
     Indication: MYELODYSPLASTIC SYNDROME
     Dosage: 10  MG, 1 IN 1 D, ORAL
     Route: 048
     Dates: start: 20080615, end: 20080630
  2. DESFERAL [Concomitant]
  3. MOPRAL (OMEPRAZOLE) (TABLETS) [Concomitant]
  4. IMOVANE (ZOPICLONE) (TABLETS) [Concomitant]
  5. FERRIPROX (DEFERIPRONE) [Concomitant]
  6. ALDACTAZINE ( ALDACTAZINE ) [Concomitant]
  7. LASILIX (FUROSEMIDE) (CAPSULES) [Concomitant]
  8. OXYNORM (OXYCODONE HYDROCHLORIDE) (CAPSULES) [Concomitant]
  9. TOPALGIC LP (TRAMADOL HYDROCHLORIDE) (TABLETS) [Concomitant]
  10. FOLIC ACID [Concomitant]
  11. FOSCAVIR [Concomitant]
  12. NEURONTIN [Concomitant]
  13. EFFEXOR [Concomitant]
  14. XYZAL (LEVOCETIRIZINE DIHYDROCHLORIDE) [Concomitant]

REACTIONS (7)
  - BRAIN NATRIURETIC PEPTIDE INCREASED [None]
  - BUNDLE BRANCH BLOCK RIGHT [None]
  - CONDITION AGGRAVATED [None]
  - CONJUNCTIVITIS [None]
  - PULMONARY EMBOLISM [None]
  - PULMONARY HYPERTENSION [None]
  - VENOUS THROMBOSIS [None]
